FAERS Safety Report 8770237 (Version 1)
Quarter: 2012Q4

REPORT INFORMATION
  Report Type: 
  Country: US (occurrence: US)
  Receive Date: 20120906
  Receipt Date: 20120906
  Transmission Date: 20130627
  Serious: Yes (Other)
  Sender: FDA-Public Use
  Company Number: US-PFIZER INC-2012214132

PATIENT
  Age: 57 Year
  Sex: Male

DRUGS (3)
  1. GLYBURIDE USP MICRONISED [Suspect]
     Dosage: UNK
  2. ACETAMINOPHEN [Suspect]
     Dosage: UNK
  3. ACETYLSALICYLIC ACID [Suspect]
     Dosage: UNK

REACTIONS (4)
  - Overdose [Unknown]
  - Hypoglycaemia [Recovered/Resolved]
  - Liver injury [Unknown]
  - Unresponsive to stimuli [Unknown]
